FAERS Safety Report 4800017-9 (Version None)
Quarter: 2005Q4

REPORT INFORMATION
  Report Type: 
  Country: None (occurrence: None)
  Receive Date: 20051013
  Receipt Date: 20051004
  Transmission Date: 20060501
  Serious: Yes (Hospitalization)
  Sender: FDA-Public Use
  Company Number: 2005136833

PATIENT
  Age: 32 Year
  Sex: Female

DRUGS (3)
  1. SULFASALAZINE [Suspect]
     Indication: RHEUMATOID ARTHRITIS
     Dosage: ORAL
     Route: 048
     Dates: start: 20050828, end: 20050901
  2. CELECOXIB (CELECOXIB) [Suspect]
     Indication: ANTIINFLAMMATORY THERAPY
     Dosage: 200 MG(200 MG, 1 IN 1 D), ORAL
     Route: 048
     Dates: start: 20050828, end: 20050901
  3. ALL OTHER THERAPEUTIC PRODUCTS (ALL OTHER THERAPEUTIC PRODUCTS) [Concomitant]

REACTIONS (7)
  - ABDOMINAL PAIN [None]
  - CYTOLYTIC HEPATITIS [None]
  - FACE OEDEMA [None]
  - PYREXIA [None]
  - RASH [None]
  - TONGUE OEDEMA [None]
  - VOMITING [None]
